FAERS Safety Report 17128876 (Version 1)
Quarter: 2019Q4

REPORT INFORMATION
  Report Type: Spontaneous
  Country: US (occurrence: US)
  Receive Date: 20191115
  Receipt Date: 20191115
  Transmission Date: 20200122
  Serious: Yes (Hospitalization)
  Sender: FDA-Public Use
  Company Number: None

PATIENT
  Sex: Female

DRUGS (14)
  1. IMITREZ [Concomitant]
  2. EPIPEN [Concomitant]
     Active Substance: EPINEPHRINE
  3. PULMICORT TURBUHALER [Concomitant]
     Active Substance: BUDESONIDE
  4. DOXYCYC MONO [Concomitant]
     Active Substance: DOXYCYCLINE
  5. RANITIDINE. [Concomitant]
     Active Substance: RANITIDINE
  6. CYCLOSPORINE MOD 25MG CAPS [Suspect]
     Active Substance: CYCLOSPORINE
     Indication: LIVER TRANSPLANT
     Route: 048
     Dates: start: 20181029, end: 20191114
  7. OMEPRAZOLE. [Concomitant]
     Active Substance: OMEPRAZOLE
  8. PROMETHAZINE [Concomitant]
     Active Substance: PROMETHAZINE HYDROCHLORIDE
  9. HYDROXY HCL [Concomitant]
  10. IRON [Concomitant]
     Active Substance: IRON
  11. PROVENTAL AER HFA [Concomitant]
  12. METOPROLOL SUC [Concomitant]
  13. BUSPIRONE [Concomitant]
     Active Substance: BUSPIRONE HYDROCHLORIDE
  14. NORTRIPTILINE [Concomitant]

REACTIONS (2)
  - Heart rate increased [None]
  - Product dose omission [None]
